FAERS Safety Report 5208541-4 (Version None)
Quarter: 2007Q1

REPORT INFORMATION
  Report Type: 
  Country: None (occurrence: None)
  Receive Date: 20070115
  Receipt Date: 20070108
  Transmission Date: 20070707
  Serious: Yes (Congenital Anomaly)
  Sender: FDA-Public Use
  Company Number: IT-BOEHRINGER INGELHEIM GMBH, GERMANY-2007-IT-00004IT

PATIENT

DRUGS (3)
  1. NEVIRAPINE [Suspect]
  2. AZT [Concomitant]
  3. LAMIVUDINE [Concomitant]

REACTIONS (2)
  - CONGENITAL CHOROID PLEXUS CYST [None]
  - CONGENITAL GENITOURINARY ABNORMALITY [None]
